FAERS Safety Report 6464166-4 (Version None)
Quarter: 2009Q4

REPORT INFORMATION
  Report Type: 
  Country: None (occurrence: None)
  Receive Date: 20091201
  Receipt Date: 20091124
  Transmission Date: 20100525
  Serious: Yes (Death, Other)
  Sender: FDA-Public Use
  Company Number: ES-SANOFI-AVENTIS-2009SA004656

PATIENT
  Age: 84 Year
  Sex: Female

DRUGS (12)
  1. ACETYLSALICYLIC ACID [Suspect]
     Route: 048
     Dates: start: 20090827, end: 20090903
  2. ENOXAPARIN SODIUM [Suspect]
     Indication: ATRIAL FLUTTER
     Route: 058
     Dates: start: 20090827, end: 20090831
  3. ENOXAPARIN SODIUM [Suspect]
     Route: 058
     Dates: start: 20090901, end: 20090903
  4. SINTROM [Suspect]
     Indication: ATRIAL FLUTTER
     Route: 048
     Dates: start: 20090902, end: 20090902
  5. SINTROM [Suspect]
     Route: 048
     Dates: start: 20090903, end: 20090903
  6. VANCOMYCIN [Concomitant]
     Indication: INFECTION
     Dates: start: 20090828, end: 20090828
  7. FUROSEMIDA [Concomitant]
     Indication: HYPERTENSION
     Route: 042
     Dates: start: 20090827, end: 20090830
  8. ESPIRONOLACTONA [Concomitant]
     Dates: start: 20090827
  9. FENTANYL-100 [Concomitant]
     Route: 062
     Dates: start: 20090827
  10. MEROPENEM [Concomitant]
     Route: 042
     Dates: start: 20090828
  11. PANTOPRAZOLE [Concomitant]
     Route: 042
     Dates: start: 20090827
  12. LACTULOSE [Concomitant]
     Route: 048
     Dates: start: 20090827

REACTIONS (3)
  - HYPOCOAGULABLE STATE [None]
  - HYPOVOLAEMIC SHOCK [None]
  - VESSEL PUNCTURE SITE HAEMATOMA [None]
